FAERS Safety Report 8548242-8 (Version None)
Quarter: 2012Q3

REPORT INFORMATION
  Report Type: 
  Country: None (occurrence: None)
  Receive Date: 20120730
  Receipt Date: 20120723
  Transmission Date: 20120928
  Serious: Yes (Other)
  Sender: FDA-Public Use
  Company Number: US-009507513-1207USA010747

PATIENT

DRUGS (4)
  1. ZOCOR [Suspect]
     Dosage: 1 DF, UNK
     Route: 048
  2. FUROSEMIDE [Concomitant]
  3. XANAX [Concomitant]
  4. ATENOLOL [Concomitant]

REACTIONS (2)
  - THROMBOCYTOPENIA [None]
  - ANTI-PLATELET ANTIBODY POSITIVE [None]
